FAERS Safety Report 4446605-3 (Version None)
Quarter: 2004Q3

REPORT INFORMATION
  Report Type: 
  Country: None (occurrence: None)
  Receive Date: 20040908
  Receipt Date: 20040823
  Transmission Date: 20050211
  Serious: Yes (Hospitalization)
  Sender: FDA-Public Use
  Company Number: 177024

PATIENT
  Age: 51 Year
  Sex: Female
  Weight: 58.9676 kg

DRUGS (6)
  1. AVONEX [Suspect]
     Indication: MULTIPLE SCLEROSIS
     Dosage: 30 MCG QW IM
     Route: 030
     Dates: start: 20030301, end: 20030101
  2. AVONEX [Suspect]
     Indication: MULTIPLE SCLEROSIS
     Dosage: 30 MCG QW IM
     Route: 030
     Dates: start: 20030101, end: 20031101
  3. HYDROCHLOROTHIAZIDE [Concomitant]
  4. XANAX [Concomitant]
  5. VICODIN [Concomitant]
  6. NEURONTIN [Concomitant]

REACTIONS (8)
  - CARPAL TUNNEL SYNDROME [None]
  - COORDINATION ABNORMAL [None]
  - EXOSTOSIS [None]
  - HYPOAESTHESIA [None]
  - INSOMNIA [None]
  - MULTIPLE SCLEROSIS [None]
  - NECK PAIN [None]
  - SPINAL CORD DISORDER [None]
